FAERS Safety Report 6992187-1 (Version None)
Quarter: 2010Q3

REPORT INFORMATION
  Report Type: 
  Country: None (occurrence: None)
  Receive Date: 20100917
  Receipt Date: 20100817
  Transmission Date: 20110219
  Serious: No
  Sender: FDA-Public Use
  Company Number: A0876360A

PATIENT
  Age: 51 Year
  Sex: Female

DRUGS (2)
  1. PROMACTA [Suspect]
     Dosage: 50MG PER DAY
     Route: 048
     Dates: start: 20100812, end: 20100815
  2. OMEPRAZOLE [Concomitant]

REACTIONS (5)
  - ARTHRALGIA [None]
  - HYPOAESTHESIA ORAL [None]
  - MYALGIA [None]
  - ORAL DISCOMFORT [None]
  - PARAESTHESIA [None]
